FAERS Safety Report 11238854 (Version 1)
Quarter: 2015Q2

REPORT INFORMATION
  Report Type: Spontaneous
  Country: DE (occurrence: None)
  Receive Date: 20150630
  Receipt Date: 20150630
  Transmission Date: 20150821
  Serious: Yes (Other)
  Sender: FDA-Public Use
  Company Number: DE-H14001-15-00978

PATIENT
  Age: 76 Year
  Sex: Female

DRUGS (4)
  1. DRONEDARONE (DRONEDARONE) (UNKNOWN) (DRONEDARONE) [Suspect]
     Active Substance: DRONEDARONE
     Indication: ATRIAL TACHYCARDIA
     Dosage: 800 MG (400 MG, 2 IN 1 D)
  2. AMIODARONE (AMIODARONE) (UNKNOWN) (AMIODARONE) [Suspect]
     Active Substance: AMIODARONE
     Indication: PRODUCT USED FOR UNKNOWN INDICATION
     Route: 042
  3. DIGOXIN (DIGOXIN) (UNKNOWN) (DIGOXIN) [Suspect]
     Active Substance: DIGOXIN
     Indication: PRODUCT USED FOR UNKNOWN INDICATION
     Route: 042
  4. FUROSEMIDE. [Concomitant]
     Active Substance: FUROSEMIDE

REACTIONS (4)
  - Cardiac failure congestive [None]
  - Torsade de pointes [None]
  - Drug interaction [None]
  - Wrong drug administered [None]
